FAERS Safety Report 15775635 (Version 2)
Quarter: 2019Q1

REPORT INFORMATION
  Report Type: Spontaneous
  Country: US (occurrence: US)
  Receive Date: 20181231
  Receipt Date: 20190130
  Transmission Date: 20190417
  Serious: No
  Sender: FDA-Public Use
  Company Number: US-LUPIN PHARMACEUTICALS INC.-2018-08764

PATIENT
  Sex: Female
  Weight: 71.66 kg

DRUGS (1)
  1. IRBESARTAN AND HYDROCHLOROTHIAZIDE TABLETS USP 150 MG/12.5 MG [Suspect]
     Active Substance: HYDROCHLOROTHIAZIDE\IRBESARTAN
     Indication: HYPERTENSION
     Dosage: 150 MG/12.5 MG
     Route: 048
     Dates: start: 20181004

REACTIONS (1)
  - Somnolence [Recovered/Resolved]
